FAERS Safety Report 5706035-0 (Version None)
Quarter: 2008Q2

REPORT INFORMATION
  Report Type: 
  Country: None (occurrence: None)
  Receive Date: 20080415
  Receipt Date: 20080414
  Transmission Date: 20081010
  Serious: No
  Sender: FDA-Public Use
  Company Number: US-BAXTER-2008BH003282

PATIENT
  Age: 42 Year
  Sex: Female

DRUGS (2)
  1. HEPARIN SODIUM [Suspect]
     Indication: PROTEIN C DEFICIENCY
     Route: 058
     Dates: start: 20071201, end: 20080210
  2. VITAMIN TAB [Concomitant]
     Indication: DRUG USE FOR UNKNOWN INDICATION
     Dosage: DOSE UNIT:UNKNOWN
     Route: 048

REACTIONS (8)
  - DECREASED APPETITE [None]
  - DRUG EXPOSURE DURING PREGNANCY [None]
  - FEELING JITTERY [None]
  - HEART RATE INCREASED [None]
  - NAUSEA [None]
  - NERVOUSNESS [None]
  - PALPITATIONS [None]
  - PSYCHOMOTOR HYPERACTIVITY [None]
